FAERS Safety Report 8243849-X (Version None)
Quarter: 2012Q1

REPORT INFORMATION
  Report Type: 
  Country: None (occurrence: None)
  Receive Date: 20120309
  Receipt Date: 20100907
  Transmission Date: 20120608
  Serious: Yes (Other)
  Sender: FDA-Public Use
  Company Number: PHHY2010US60856

PATIENT
  Age: 39 Year
  Sex: Female

DRUGS (1)
  1. EXTAVIA [Suspect]
     Indication: MULTIPLE SCLEROSIS
     Dosage: QOD, SUBCUTANEOUS
     Route: 058
     Dates: start: 20100201, end: 20100902

REACTIONS (1)
  - MULTIPLE SCLEROSIS RELAPSE [None]
